FAERS Safety Report 4792490-X (Version None)
Quarter: 2005Q4

REPORT INFORMATION
  Report Type: 
  Country: None (occurrence: None)
  Receive Date: 20051010
  Receipt Date: 20051002
  Transmission Date: 20060501
  Serious: Yes (Hospitalization)
  Sender: FDA-Public Use
  Company Number: PHBS2005ES14454

PATIENT
  Age: 41 Year
  Sex: Female

DRUGS (6)
  1. TRILEPTAL [Suspect]
     Indication: AFFECTIVE DISORDER
     Dosage: 1800 MG/D
     Route: 048
     Dates: end: 20051001
  2. ZYPREXA [Concomitant]
     Dosage: UNK, BID
  3. HALOPERIDOL [Concomitant]
  4. ORFIDAL [Concomitant]
     Dosage: UNK, BID
  5. HIDROXIL B12 B6 B1 [Concomitant]
     Dosage: UNK, BID
  6. CROMATONBIC FOLINICO [Concomitant]
     Dosage: UNK, BID

REACTIONS (8)
  - BLOOD OSMOLARITY DECREASED [None]
  - BLOOD SODIUM DECREASED [None]
  - HAEMOGLOBIN DECREASED [None]
  - PLATELET COUNT INCREASED [None]
  - PNEUMONIA [None]
  - PNEUMONIA PRIMARY ATYPICAL [None]
  - PYREXIA [None]
  - SCHIZOAFFECTIVE DISORDER [None]
